FAERS Safety Report 24073557 (Version 1)
Quarter: 2024Q3

REPORT INFORMATION
  Report Type: Spontaneous
  Country: SK (occurrence: SK)
  Receive Date: 20240710
  Receipt Date: 20240710
  Transmission Date: 20241016
  Serious: Yes (Other)
  Sender: NOVARTIS
  Company Number: SK-002147023-NVSC2024SK141901

PATIENT
  Age: 14 Year
  Sex: Male

DRUGS (1)
  1. ELTROMBOPAG [Suspect]
     Active Substance: ELTROMBOPAG
     Indication: Immune thrombocytopenia
     Dosage: 75 MG
     Route: 065
     Dates: end: 2024

REACTIONS (2)
  - Platelet count decreased [Recovered/Resolved]
  - Therapy non-responder [Unknown]
